FAERS Safety Report 5709140-8 (Version None)
Quarter: 2008Q2

REPORT INFORMATION
  Report Type: 
  Country: None (occurrence: None)
  Receive Date: 20080418
  Receipt Date: 20080408
  Transmission Date: 20081010
  Serious: Yes (Hospitalization)
  Sender: FDA-Public Use
  Company Number: US-WYE-H03512808

PATIENT
  Sex: Female

DRUGS (1)
  1. VENLAFAXINE HYDROCHLORIDE [Suspect]
     Indication: MAJOR DEPRESSION
     Dosage: DOSE AND FREQUENCY UNSPECIFIED

REACTIONS (3)
  - HEPATIC ENZYME INCREASED [None]
  - METABOLIC ACIDOSIS [None]
  - VOMITING [None]
